FAERS Safety Report 18224103 (Version 2)
Quarter: 2020Q4

REPORT INFORMATION
  Report Type: Spontaneous
  Country: US (occurrence: US)
  Receive Date: 20200902
  Receipt Date: 20201112
  Transmission Date: 20210113
  Serious: Yes (Other)
  Sender: FDA-Public Use
  Company Number: US-ELI_LILLY_AND_COMPANY-US202008010030

PATIENT
  Age: 53 Year
  Sex: Male

DRUGS (13)
  1. HUMULIN R U-500 [Suspect]
     Active Substance: INSULIN HUMAN
     Dosage: 180 U, EACH MORNING
     Route: 058
  2. HUMULIN R U-500 [Suspect]
     Active Substance: INSULIN HUMAN
     Dosage: 120 U, BID (NOON AND NIGHT)
     Route: 058
     Dates: start: 202006
  3. HUMULIN R U-500 [Suspect]
     Active Substance: INSULIN HUMAN
     Dosage: 120 U, EACH EVENING
     Route: 058
     Dates: start: 202006
  4. HUMULIN R U-500 [Suspect]
     Active Substance: INSULIN HUMAN
     Dosage: 120 U, BID (NOON AND NIGHT)
     Route: 058
     Dates: start: 202006
  5. HUMULIN R U-500 [Suspect]
     Active Substance: INSULIN HUMAN
     Indication: PRODUCT USED FOR UNKNOWN INDICATION
     Dosage: 150 U, EACH MORNING
     Route: 058
     Dates: start: 202006
  6. HUMULIN R U-500 [Suspect]
     Active Substance: INSULIN HUMAN
     Dosage: 160 U, DAILY (NIGHT)
     Route: 058
  7. HUMULIN R U-500 [Suspect]
     Active Substance: INSULIN HUMAN
     Dosage: 180 U, EACH MORNING
     Route: 058
  8. METFORMIN ER [Concomitant]
     Active Substance: METFORMIN HYDROCHLORIDE
     Indication: TYPE 2 DIABETES MELLITUS
     Dosage: 500 MG, BID
  9. HUMULIN R U-500 [Suspect]
     Active Substance: INSULIN HUMAN
     Dosage: 160 U, DAILY (NIGHT)
     Route: 058
  10. HUMULIN R U-500 [Suspect]
     Active Substance: INSULIN HUMAN
     Indication: PRODUCT USED FOR UNKNOWN INDICATION
     Dosage: 150 U, EACH MORNING
     Route: 058
     Dates: start: 202006
  11. HUMULIN R U-500 [Suspect]
     Active Substance: INSULIN HUMAN
     Dosage: 170 U, EACH MORNING
     Route: 058
  12. HUMULIN R U-500 [Suspect]
     Active Substance: INSULIN HUMAN
     Dosage: 130 U, DAILY (AT LUNCH TIME)
     Route: 058
  13. OZEMPIC [Concomitant]
     Active Substance: SEMAGLUTIDE
     Indication: TYPE 2 DIABETES MELLITUS
     Dosage: 25 U, WEEKLY (1/W)

REACTIONS (9)
  - Dry mouth [Unknown]
  - Thirst [Unknown]
  - Feeling abnormal [Unknown]
  - Hyperhidrosis [Unknown]
  - Glycosylated haemoglobin increased [Not Recovered/Not Resolved]
  - Weight increased [Unknown]
  - Drug ineffective [Not Recovered/Not Resolved]
  - Blood glucose increased [Not Recovered/Not Resolved]
  - Blood glucose decreased [Not Recovered/Not Resolved]

NARRATIVE: CASE EVENT DATE: 202006
